FAERS Safety Report 17083848 (Version 2)
Quarter: 2019Q4

REPORT INFORMATION
  Report Type: Report from Study
  Country: DE (occurrence: DE)
  Receive Date: 20191127
  Receipt Date: 20191219
  Transmission Date: 20200122
  Serious: Yes (Hospitalization, Disabling)
  Sender: FDA-Public Use
  Company Number: DE-PFIZER INC-2019512995

PATIENT
  Age: 80 Year
  Sex: Female

DRUGS (11)
  1. ROSUVASTATIN. [Concomitant]
     Active Substance: ROSUVASTATIN
  2. NO SUBJECT DRUG [Suspect]
     Active Substance: UNSPECIFIED INGREDIENT
     Dosage: NO DOSE GIVEN
  3. COLECALCIFEROL [Concomitant]
     Active Substance: CHOLECALCIFEROL
  4. AMLODIPINE [Concomitant]
     Active Substance: AMLODIPINE BESYLATE
     Indication: HYPERTENSION
  5. MAGNESIUM [Concomitant]
     Active Substance: MAGNESIUM
     Indication: CORONARY ARTERY DISEASE
  6. METHOTREXATE SODIUM. [Suspect]
     Active Substance: METHOTREXATE SODIUM
     Indication: RHEUMATOID ARTHRITIS
     Dosage: 10 MG, WEEKLY
     Route: 065
  7. EZETIMIBE. [Concomitant]
     Active Substance: EZETIMIBE
  8. METOPROLOL. [Concomitant]
     Active Substance: METOPROLOL
     Indication: CORONARY ARTERY DISEASE
  9. FOLIC ACID. [Concomitant]
     Active Substance: FOLIC ACID
  10. RITUXIMAB. [Suspect]
     Active Substance: RITUXIMAB
     Indication: RHEUMATOID ARTHRITIS
     Dosage: 1000 MG, UNK
     Route: 065
  11. CYANOCOBALAMIN. [Concomitant]
     Active Substance: CYANOCOBALAMIN

REACTIONS (2)
  - Transient ischaemic attack [Recovered/Resolved]
  - Aortic aneurysm [Not Recovered/Not Resolved]

NARRATIVE: CASE EVENT DATE: 20190905
